FAERS Safety Report 6932253-X (Version None)
Quarter: 2010Q3

REPORT INFORMATION
  Report Type: 
  Country: None (occurrence: None)
  Receive Date: 20100819
  Receipt Date: 20100811
  Transmission Date: 20110219
  Serious: Yes (Other)
  Sender: FDA-Public Use
  Company Number: CH-ASTRAZENECA-2010SE29668

PATIENT
  Age: 51 Year
  Sex: Female

DRUGS (3)
  1. NEXIUM [Suspect]
     Indication: GASTRITIS
     Route: 048
     Dates: start: 20100525, end: 20100620
  2. TEGRETOL [Concomitant]
     Indication: EPILEPSY
     Dosage: 200 MG IN THE MORNING AND 400 MG IN THE EVENING
     Dates: start: 20020901
  3. SORTIS [Concomitant]
     Indication: HYPERCHOLESTEROLAEMIA
     Dosage: 20

REACTIONS (1)
  - EPILEPSY [None]
